FAERS Safety Report 23488890 (Version 1)
Quarter: 2024Q1

REPORT INFORMATION
  Report Type: Spontaneous
  Country: US (occurrence: US)
  Receive Date: 20240206
  Receipt Date: 20240206
  Transmission Date: 20240410
  Serious: No
  Sender: FDA-Public Use
  Company Number: US-PFIZER INC-202400032624

PATIENT

DRUGS (1)
  1. NURTEC ODT [Suspect]
     Active Substance: RIMEGEPANT SULFATE
     Indication: Migraine
     Dosage: UNK; TAKE IT EVERY 3 DAYS

REACTIONS (5)
  - Drug hypersensitivity [Unknown]
  - Ear pruritus [Recovered/Resolved]
  - Epistaxis [Unknown]
  - Weight increased [Unknown]
  - Off label use [Unknown]
